FAERS Safety Report 15745960 (Version 1)
Quarter: 2018Q4

REPORT INFORMATION
  Report Type: Report from Study
  Country: RU (occurrence: RU)
  Receive Date: 20181220
  Receipt Date: 20181220
  Transmission Date: 20190205
  Serious: Yes (Other)
  Sender: FDA-Public Use
  Company Number: RU-ASTRAZENECA-2018SF64330

PATIENT
  Age: 60 Year
  Sex: Female
  Weight: 61 kg

DRUGS (2)
  1. BRILINTA [Suspect]
     Active Substance: TICAGRELOR
     Indication: MYOCARDIAL INFARCTION
     Route: 048
     Dates: start: 201807
  2. BETALOC ZOK [Suspect]
     Active Substance: METOPROLOL SUCCINATE
     Route: 048
     Dates: start: 201807

REACTIONS (1)
  - Vascular stent occlusion [Not Recovered/Not Resolved]

NARRATIVE: CASE EVENT DATE: 20181208
